FAERS Safety Report 8077678-7 (Version None)
Quarter: 2012Q1

REPORT INFORMATION
  Report Type: 
  Country: None (occurrence: None)
  Receive Date: 20120127
  Receipt Date: 20120118
  Transmission Date: 20120608
  Serious: Yes (Hospitalization)
  Sender: FDA-Public Use
  Company Number: IE-MEDIMMUNE-MEDI-0014643

PATIENT
  Sex: Male

DRUGS (3)
  1. SYNAGIS [Suspect]
     Route: 030
     Dates: start: 20111020, end: 20111020
  2. FERROUS SULFATE TAB [Concomitant]
  3. KAPSOVIT [Concomitant]

REACTIONS (1)
  - BRONCHIOLITIS [None]
